FAERS Safety Report 8598363-9 (Version None)
Quarter: 2012Q3

REPORT INFORMATION
  Report Type: 
  Country: None (occurrence: None)
  Receive Date: 20120816
  Receipt Date: 20120803
  Transmission Date: 20120928
  Serious: Yes (Other)
  Sender: FDA-Public Use
  Company Number: US-JNJFOC-20110701073

PATIENT
  Sex: Male
  Weight: 94.35 kg

DRUGS (1)
  1. REMICADE [Suspect]
     Indication: PRODUCT USED FOR UNKNOWN INDICATION
     Dosage: HAS BEEN ON REMICADE FOR YEARS
     Route: 042

REACTIONS (1)
  - INTESTINAL ADENOCARCINOMA [None]
